FAERS Safety Report 18237120 (Version 1)
Quarter: 2020Q3

REPORT INFORMATION
  Report Type: Spontaneous
  Country: US (occurrence: US)
  Receive Date: 20200907
  Receipt Date: 20200907
  Transmission Date: 20201103
  Serious: Yes (Hospitalization)
  Sender: FDA-Public Use
  Company Number: US-RECORDATI RARE DISEASES-2089453

PATIENT
  Age: 13 Month
  Sex: Male

DRUGS (1)
  1. CARBAGLU [Suspect]
     Active Substance: CARGLUMIC ACID
     Indication: UREA CYCLE DISORDER
     Dates: start: 20190806

REACTIONS (2)
  - Productive cough [Unknown]
  - Ammonia increased [Unknown]

NARRATIVE: CASE EVENT DATE: 202008
